FAERS Safety Report 19985836 (Version 6)
Quarter: 2022Q1

REPORT INFORMATION
  Report Type: Report from Study
  Country: US (occurrence: US)
  Receive Date: 20211021
  Receipt Date: 20220307
  Transmission Date: 20220424
  Serious: Yes (Life-Threatening, Hospitalization, Other)
  Sender: FDA-Public Use
  Company Number: US-BAXTER-2021BAX032105

PATIENT
  Age: 18 Year
  Sex: Female
  Weight: 80.7 kg

DRUGS (15)
  1. CYCLOPHOSPHAMIDE [Suspect]
     Active Substance: CYCLOPHOSPHAMIDE
     Indication: Acute lymphocytic leukaemia
     Dosage: (DAY 1 AND 29); FIRST AND LAST DOSE
     Route: 042
     Dates: start: 20210903, end: 20211001
  2. CYCLOPHOSPHAMIDE [Suspect]
     Active Substance: CYCLOPHOSPHAMIDE
     Dosage: REGIMEN #2,
     Route: 042
     Dates: start: 20210903, end: 20211207
  3. CYCLOPHOSPHAMIDE [Suspect]
     Active Substance: CYCLOPHOSPHAMIDE
     Dosage: LAST DOSE
     Route: 042
     Dates: start: 20211001
  4. CYTARABINE [Suspect]
     Active Substance: CYTARABINE
     Indication: Acute lymphocytic leukaemia
     Dosage: DAY (1-4);DAY (8-11); (DAY 1 AND 29-32) FIRST DOSE,
     Route: 042
     Dates: start: 20210903, end: 20211207
  5. CYTARABINE [Suspect]
     Active Substance: CYTARABINE
     Dosage: LAST DOSE
     Route: 042
     Dates: start: 20211004
  6. METHOTREXATE [Suspect]
     Active Substance: METHOTREXATE
     Indication: Acute lymphocytic leukaemia
     Dosage: (DAY 1,8 15,22),
     Route: 037
     Dates: start: 20210903, end: 20211207
  7. METHOTREXATE [Suspect]
     Active Substance: METHOTREXATE
     Dosage: LAST DOSE,
     Route: 037
     Dates: start: 20210924
  8. MERCAPTOPURINE [Suspect]
     Active Substance: MERCAPTOPURINE
     Indication: Acute lymphocytic leukaemia
     Dosage: (DAY 1-5, 8-12) (DAY 6-7, 13-14, 29-42); TABLET,
     Route: 048
     Dates: start: 20210903, end: 20211207
  9. MERCAPTOPURINE [Suspect]
     Active Substance: MERCAPTOPURINE
     Dosage: LAST DOSE; TABLET
     Route: 048
     Dates: start: 20210917
  10. VINCRISTINE [Suspect]
     Active Substance: VINCRISTINE
     Indication: Acute lymphocytic leukaemia
     Dosage: (DAY 15, DAY 22, 43 AND 50); FIRST AND LAST DOSE
     Route: 042
     Dates: start: 20210917, end: 20211029
  11. VINCRISTINE [Suspect]
     Active Substance: VINCRISTINE
     Dosage: (DAY 15, DAY 22, 43 AND 50); FIRST AND LAST DOSE
     Route: 042
     Dates: start: 20211102, end: 20211207
  12. RUXOLITINIB [Suspect]
     Active Substance: RUXOLITINIB
     Indication: Acute lymphocytic leukaemia
     Dosage: (DAY1-14, 29-42); TABLET (INCB018424); FIRST DOSE
     Route: 048
     Dates: start: 20210903, end: 20211207
  13. RUXOLITINIB [Suspect]
     Active Substance: RUXOLITINIB
     Dosage: LAST DOSE; TABLET
     Route: 048
     Dates: start: 20210917, end: 20210917
  14. PEGASPARGASE [Suspect]
     Active Substance: PEGASPARGASE
     Indication: Acute lymphocytic leukaemia
     Dosage: DAY 15 AND 43
     Route: 048
     Dates: start: 20210917, end: 20211207
  15. PEGASPARGASE [Suspect]
     Active Substance: PEGASPARGASE
     Dosage: LAST DOSE
     Route: 048
     Dates: start: 20211022

REACTIONS (10)
  - Hyperglycaemia [Recovering/Resolving]
  - Delirium [Recovered/Resolved]
  - Delirium [Recovered/Resolved]
  - Anaemia [Recovering/Resolving]
  - Platelet count decreased [Recovering/Resolving]
  - Febrile neutropenia [Recovered/Resolved]
  - Hypotension [Recovering/Resolving]
  - Respiratory failure [Recovered/Resolved]
  - Sepsis [Recovering/Resolving]
  - Sepsis [Recovered/Resolved]

NARRATIVE: CASE EVENT DATE: 20210917
